FAERS Safety Report 8606952-8 (Version None)
Quarter: 2012Q3

REPORT INFORMATION
  Report Type: 
  Country: None (occurrence: None)
  Receive Date: 20120820
  Receipt Date: 20120815
  Transmission Date: 20120928
  Serious: No
  Sender: FDA-Public Use
  Company Number: US-PFIZER INC-2012199840

PATIENT
  Age: 39 Year
  Sex: Male
  Weight: 92.971 kg

DRUGS (2)
  1. ADVIL [Suspect]
     Indication: MIGRAINE
     Dosage: TWO CAPSULES, UNK
     Route: 048
     Dates: start: 20120814, end: 20120814
  2. ELIDEL [Concomitant]
     Indication: ECZEMA
     Dosage: UNK

REACTIONS (1)
  - NAUSEA [None]
